FAERS Safety Report 12181100 (Version 2)
Quarter: 2016Q1

REPORT INFORMATION
  Report Type: Report from Study
  Country: US (occurrence: US)
  Receive Date: 20160315
  Receipt Date: 20160322
  Transmission Date: 20160526
  Serious: Yes (Death)
  Sender: FDA-Public Use
  Company Number: US-EXELIXIS-CABO-15005741

PATIENT
  Sex: Female

DRUGS (1)
  1. COMETRIQ [Suspect]
     Active Substance: CABOZANTINIB S-MALATE
     Indication: THYROID CANCER
     Dosage: 140 MG, QD
     Route: 048
     Dates: start: 20151003, end: 201602

REACTIONS (7)
  - Oral discomfort [Unknown]
  - Dysphonia [Unknown]
  - Malignant neoplasm progression [Fatal]
  - Glossodynia [Unknown]
  - Dysphagia [Not Recovered/Not Resolved]
  - Oral pain [Unknown]
  - Fatigue [Unknown]
